FAERS Safety Report 23783868 (Version 3)
Quarter: 2024Q3

REPORT INFORMATION
  Report Type: Spontaneous
  Country: US (occurrence: US)
  Receive Date: 20240425
  Receipt Date: 20240711
  Transmission Date: 20241017
  Serious: Yes (Other)
  Sender: INCYTE
  Company Number: US-INCYTE CORPORATION-2024IN004292

PATIENT

DRUGS (6)
  1. JAKAFI [Suspect]
     Active Substance: RUXOLITINIB
     Indication: Juvenile idiopathic arthritis
     Dosage: UNK
     Route: 065
  2. JAKAFI [Suspect]
     Active Substance: RUXOLITINIB
     Indication: Interstitial lung disease
  3. CANAKINUMAB [Suspect]
     Active Substance: CANAKINUMAB
     Indication: Juvenile idiopathic arthritis
     Dosage: UNK
     Route: 065
  4. CANAKINUMAB [Suspect]
     Active Substance: CANAKINUMAB
     Indication: Interstitial lung disease
  5. METHYLPREDNISOLONE [Suspect]
     Active Substance: METHYLPREDNISOLONE
     Indication: Juvenile idiopathic arthritis
     Dosage: UNK
     Route: 065
  6. METHYLPREDNISOLONE [Suspect]
     Active Substance: METHYLPREDNISOLONE
     Indication: Interstitial lung disease

REACTIONS (3)
  - Interstitial lung disease [Unknown]
  - Disease progression [Unknown]
  - Off label use [Unknown]
